FAERS Safety Report 16358235 (Version 1)
Quarter: 2019Q2

REPORT INFORMATION
  Report Type: Spontaneous
  Country: US (occurrence: US)
  Receive Date: 20190527
  Receipt Date: 20190527
  Transmission Date: 20190711
  Serious: Yes (Life-Threatening, Hospitalization, Other)
  Sender: FDA-Public Use
  Company Number: US-ELI_LILLY_AND_COMPANY-US201905010904

PATIENT
  Age: 34 Year
  Sex: Female
  Weight: 73.35 kg

DRUGS (2)
  1. ZOLOFT [Concomitant]
     Active Substance: SERTRALINE HYDROCHLORIDE
  2. TALTZ [Suspect]
     Active Substance: IXEKIZUMAB
     Indication: PSORIASIS
     Dosage: 80 MG, WEEKLY (1/W)
     Route: 030
     Dates: start: 20160901, end: 20161127

REACTIONS (3)
  - Incorrect route of product administration [Unknown]
  - Inappropriate schedule of product administration [Unknown]
  - Acute pulmonary oedema [Unknown]

NARRATIVE: CASE EVENT DATE: 20161129
